FAERS Safety Report 7111614-2 (Version None)
Quarter: 2010Q4

REPORT INFORMATION
  Report Type: 
  Country: None (occurrence: None)
  Receive Date: 20101118
  Receipt Date: 20100325
  Transmission Date: 20110411
  Serious: Yes (Hospitalization)
  Sender: FDA-Public Use
  Company Number: US-TEVA-227095USA

PATIENT
  Sex: Female
  Weight: 65.83 kg

DRUGS (7)
  1. ALBUTEROL SULFATE AUTOHALER [Suspect]
     Indication: WHEEZING
     Dosage: 2 PUFFS
     Route: 055
     Dates: start: 20100301
  2. PRAVASTATIN SODIUM [Concomitant]
  3. IRBESARTAN [Concomitant]
  4. CIPROFLOXACIN [Concomitant]
  5. BUDESONIDE W/FORMOTEROL FUMARATE [Concomitant]
  6. MONTELUKAST [Concomitant]
  7. ESOMEPRAZOLE MAGNESIUM [Concomitant]

REACTIONS (2)
  - ATRIAL FIBRILLATION [None]
  - HEART RATE INCREASED [None]
